FAERS Safety Report 13321404 (Version 1)
Quarter: 2017Q1

REPORT INFORMATION
  Report Type: Spontaneous
  Country: US (occurrence: US)
  Receive Date: 20170310
  Receipt Date: 20170310
  Transmission Date: 20170428
  Serious: Yes (Life-Threatening)
  Sender: FDA-Public Use
  Company Number: None

PATIENT
  Age: 8 Year
  Sex: Female
  Weight: 27 kg

DRUGS (7)
  1. MITE/MOLD MIXTURE [Concomitant]
  2. MAPLE POLLEN MIXTURE [Suspect]
     Active Substance: ACER RUBRUM POLLEN\ACER SACCHARINUM POLLEN\ACER SACCHARUM POLLEN
     Indication: HYPERSENSITIVITY
     Dosage: ?          OTHER FREQUENCY:MONTHLY;?
     Route: 023
     Dates: start: 20170216, end: 20170302
  3. FUNGI MIX [Concomitant]
  4. AP DOG [Concomitant]
  5. STD CAT [Concomitant]
  6. ANIMALS/TREE MIXTURE [Concomitant]
  7. DILUENT (NORMAL SALINE, HUMAN SERUM ALBUMIN, PHENOL) [Concomitant]

REACTIONS (2)
  - Throat irritation [None]
  - Wheezing [None]

NARRATIVE: CASE EVENT DATE: 20170302
